FAERS Safety Report 9319021 (Version 1)
Quarter: 2013Q2

REPORT INFORMATION
  Report Type: Spontaneous
  Country: BR (occurrence: BR)
  Receive Date: 20130530
  Receipt Date: 20130530
  Transmission Date: 20140414
  Serious: Yes (Hospitalization)
  Sender: FDA-Public Use
  Company Number: BR-SANOFI-AVENTIS-2013SA053168

PATIENT
  Sex: Male
  Weight: 1.25 kg

DRUGS (2)
  1. CLEXANE [Suspect]
     Indication: EXPOSURE DURING PREGNANCY
     Route: 064
     Dates: start: 2012, end: 2012
  2. AAS [Suspect]
     Indication: EXPOSURE DURING PREGNANCY
     Route: 064
     Dates: start: 2012, end: 2012

REACTIONS (2)
  - Premature baby [Unknown]
  - Exposure during pregnancy [Unknown]
